FAERS Safety Report 15994244 (Version 2)
Quarter: 2020Q2

REPORT INFORMATION
  Report Type: Report from Study
  Country: DE (occurrence: DE)
  Receive Date: 20190222
  Receipt Date: 20200413
  Transmission Date: 20200713
  Serious: Yes (Other)
  Sender: FDA-Public Use
  Company Number: DE-ROCHE-2268677

PATIENT
  Age: 59 Year
  Sex: Male
  Weight: 87 kg

DRUGS (3)
  1. VENETOCLAX. [Suspect]
     Active Substance: VENETOCLAX
     Indication: CHRONIC LYMPHOCYTIC LEUKAEMIA
     Dosage: DATE OF LAST DOSE PRIOR TO ADVERSE EVENT: 12/FEB/2019.
     Route: 048
     Dates: start: 20190130, end: 20190213
  2. OBINUTUZUMAB. [Suspect]
     Active Substance: OBINUTUZUMAB
     Indication: CHRONIC LYMPHOCYTIC LEUKAEMIA
     Dosage: DATE OF LAST DOSE PRIOR TO ADVERSE EVENT: 06/FEB/2019.
     Route: 042
     Dates: start: 20190109, end: 20190206
  3. IBRUTINIB [Suspect]
     Active Substance: IBRUTINIB
     Indication: CHRONIC LYMPHOCYTIC LEUKAEMIA
     Dosage: DATE OF LAST DOSE 420 MG PRIOR TO AE ONSET: 12/FEB/2019.
     Route: 048
     Dates: start: 20190109, end: 20190213

REACTIONS (1)
  - Cryptococcal fungaemia [Recovered/Resolved]

NARRATIVE: CASE EVENT DATE: 20190211
